FAERS Safety Report 4905347-8 (Version None)
Quarter: 2006Q1

REPORT INFORMATION
  Report Type: 
  Country: None (occurrence: None)
  Receive Date: 20060208
  Receipt Date: 20060202
  Transmission Date: 20060701
  Serious: Yes (Hospitalization)
  Sender: FDA-Public Use
  Company Number: 2006CG00241

PATIENT
  Age: 19568 Day
  Sex: Male

DRUGS (6)
  1. CRESTOR [Suspect]
     Route: 048
     Dates: start: 20050801
  2. EZETROL [Suspect]
     Route: 048
     Dates: start: 20050118
  3. REYATAZ [Concomitant]
     Route: 048
     Dates: start: 20050118
  4. NORVIR [Concomitant]
  5. ZIAGEN [Concomitant]
  6. PLAVIX [Concomitant]
     Dates: start: 20050118

REACTIONS (3)
  - BLOOD LACTATE DEHYDROGENASE INCREASED [None]
  - HYPERBILIRUBINAEMIA [None]
  - NEUROPATHY PERIPHERAL [None]
